FAERS Safety Report 5337449-9 (Version None)
Quarter: 2007Q2

REPORT INFORMATION
  Report Type: 
  Country: None (occurrence: None)
  Receive Date: 20070529
  Receipt Date: 20070524
  Transmission Date: 20071010
  Serious: Yes (Disabling)
  Sender: FDA-Public Use
  Company Number: US-BOEHRINGER INGELHEIM PHARMACEUTICALS, INC.-2007-BP-05580BP

PATIENT
  Age: 63 Year
  Sex: Female

DRUGS (15)
  1. SPIRIVA [Suspect]
     Indication: CHRONIC OBSTRUCTIVE PULMONARY DISEASE
     Route: 055
     Dates: start: 20060901, end: 20070326
  2. PROTONIX [Concomitant]
     Indication: GASTROOESOPHAGEAL REFLUX DISEASE
     Route: 048
  3. LIPITOR [Concomitant]
     Indication: BLOOD CHOLESTEROL INCREASED
     Route: 048
  4. ATENOLOL [Concomitant]
     Indication: CARDIAC DISORDER
     Route: 048
  5. M.V.I. [Concomitant]
  6. ALBUTEROL [Concomitant]
     Indication: CHRONIC OBSTRUCTIVE PULMONARY DISEASE
     Route: 055
  7. ALBUTEROL [Concomitant]
     Indication: WHEEZING
     Route: 055
  8. OXYGEN [Concomitant]
  9. NEURONTIN [Concomitant]
     Route: 048
  10. LEXAPRO [Concomitant]
     Route: 048
  11. VISTARIL [Concomitant]
     Route: 048
  12. ASPIRIN [Concomitant]
     Route: 048
  13. ADVAIR DISKUS 100/50 [Concomitant]
     Route: 055
  14. MYCOSTATIN [Concomitant]
     Route: 061
  15. CALCIUM CHLORIDE [Concomitant]

REACTIONS (5)
  - BLINDNESS [None]
  - CATARACT [None]
  - DEPRESSION [None]
  - MUSCULOSKELETAL PAIN [None]
  - VISUAL ACUITY REDUCED [None]
